FAERS Safety Report 5673515-6 (Version None)
Quarter: 2008Q1

REPORT INFORMATION
  Report Type: 
  Country: None (occurrence: None)
  Receive Date: 20080319
  Receipt Date: 20080313
  Transmission Date: 20080703
  Serious: Yes (Death, Other)
  Sender: FDA-Public Use
  Company Number: EC-ABBOTT-08P-047-0441322-00

PATIENT
  Sex: Male
  Weight: 86 kg

DRUGS (4)
  1. KALETRA [Suspect]
     Indication: HIV TEST POSITIVE
     Route: 048
     Dates: start: 20070917, end: 20071020
  2. KALETRA [Suspect]
     Indication: ACQUIRED IMMUNODEFICIENCY SYNDROME
  3. ZIDOVUDINE [Concomitant]
     Indication: HIV INFECTION
     Route: 048
     Dates: start: 20070917, end: 20071020
  4. LAMIVUDINE [Concomitant]
     Indication: HIV INFECTION
     Route: 048
     Dates: start: 20070917, end: 20071020

REACTIONS (3)
  - BRAIN NEOPLASM [None]
  - HEADACHE [None]
  - INTRACRANIAL PRESSURE INCREASED [None]
